FAERS Safety Report 9495353 (Version 1)
Quarter: 2013Q3

REPORT INFORMATION
  Report Type: Spontaneous
  Country: US (occurrence: US)
  Receive Date: 20130903
  Receipt Date: 20130903
  Transmission Date: 20140515
  Serious: Yes (Hospitalization)
  Sender: FDA-Public Use
  Company Number: US-UCBSA-096138

PATIENT
  Age: 21 Year
  Sex: Female

DRUGS (1)
  1. CIMZIA [Suspect]
     Indication: CROHN^S DISEASE
     Dates: start: 20120823

REACTIONS (3)
  - Colitis [Recovered/Resolved]
  - Pain [Recovered/Resolved]
  - Aphagia [Recovered/Resolved]
